FAERS Safety Report 10889805 (Version 1)
Quarter: 2015Q1

REPORT INFORMATION
  Report Type: Spontaneous
  Country: AR (occurrence: AR)
  Receive Date: 20150305
  Receipt Date: 20150305
  Transmission Date: 20150721
  Serious: Yes (Death)
  Sender: FDA-Public Use
  Company Number: AR-BAXTER-2015BAX011313

PATIENT
  Age: 7 Month
  Sex: Female

DRUGS (4)
  1. FLUCONAZOLE. [Suspect]
     Active Substance: FLUCONAZOLE
     Indication: IMMUNODEFICIENCY CONGENITAL
  2. FLUCONAZOLE. [Suspect]
     Active Substance: FLUCONAZOLE
     Indication: CONGENITAL ECTODERMAL DYSPLASIA
     Route: 065
  3. GAMMAGARD LIQUID [Suspect]
     Active Substance: HUMAN IMMUNOGLOBULIN G
     Indication: IMMUNODEFICIENCY CONGENITAL
  4. GAMMAGARD LIQUID [Suspect]
     Active Substance: HUMAN IMMUNOGLOBULIN G
     Indication: CONGENITAL ECTODERMAL DYSPLASIA
     Route: 042

REACTIONS (3)
  - Bacterial sepsis [Fatal]
  - Meningoencephalitis bacterial [Fatal]
  - Acinetobacter infection [Fatal]
